FAERS Safety Report 5773533-3 (Version None)
Quarter: 2008Q2

REPORT INFORMATION
  Report Type: 
  Country: None (occurrence: None)
  Receive Date: 20080601
  Receipt Date: 20080215
  Transmission Date: 20081010
  Serious: No
  Sender: FDA-Public Use
  Company Number: US200708005784

PATIENT
  Age: 69 Year
  Sex: Female
  Weight: 93 kg

DRUGS (12)
  1. BYETTA [Suspect]
     Indication: INSULIN-REQUIRING TYPE 2 DIABETES MELLITUS
     Dosage: SEE IMAGE
     Route: 058
     Dates: start: 20070901, end: 20070101
  2. BYETTA [Suspect]
     Indication: INSULIN-REQUIRING TYPE 2 DIABETES MELLITUS
     Dosage: SEE IMAGE
     Route: 058
     Dates: start: 20070801, end: 20070901
  3. BYETTA [Suspect]
     Indication: INSULIN-REQUIRING TYPE 2 DIABETES MELLITUS
     Dosage: SEE IMAGE
     Route: 058
     Dates: start: 20070816, end: 20070901
  4. BYETTA [Suspect]
     Indication: INSULIN-REQUIRING TYPE 2 DIABETES MELLITUS
     Dosage: SEE IMAGE
     Route: 058
     Dates: start: 20070901, end: 20071001
  5. BYETTA [Suspect]
     Indication: INSULIN-REQUIRING TYPE 2 DIABETES MELLITUS
     Dosage: SEE IMAGE
     Route: 058
     Dates: start: 20071001, end: 20080210
  6. BYETTA [Suspect]
     Indication: INSULIN-REQUIRING TYPE 2 DIABETES MELLITUS
     Dosage: SEE IMAGE
     Route: 058
     Dates: start: 20080211
  7. BYETTA [Suspect]
  8. BYETTA [Suspect]
  9. LANTUS [Concomitant]
  10. AMARYL [Concomitant]
  11. METFORMIN HCL [Concomitant]
  12. HYZAAR [Concomitant]

REACTIONS (13)
  - BLOOD GLUCOSE DECREASED [None]
  - BLOOD GLUCOSE INCREASED [None]
  - DISORIENTATION [None]
  - DYSPEPSIA [None]
  - ERUCTATION [None]
  - FAMILY STRESS [None]
  - FLATULENCE [None]
  - INJECTION SITE EXTRAVASATION [None]
  - NAUSEA [None]
  - REGURGITATION [None]
  - TREMOR [None]
  - VOMITING [None]
  - WEIGHT DECREASED [None]
